FAERS Safety Report 5511611-4 (Version None)
Quarter: 2007Q4

REPORT INFORMATION
  Report Type: 
  Country: None (occurrence: None)
  Receive Date: 20071109
  Receipt Date: 20071026
  Transmission Date: 20080405
  Serious: Yes (Other)
  Sender: FDA-Public Use
  Company Number: JP-ELI_LILLY_AND_COMPANY-JP200708006579

PATIENT
  Sex: Male
  Weight: 64 kg

DRUGS (13)
  1. PEMETREXED [Suspect]
     Indication: PLEURAL MESOTHELIOMA MALIGNANT
     Dosage: 880 MG, OTHER
     Route: 042
     Dates: start: 20070215
  2. CISPLATIN [Suspect]
     Indication: PLEURAL MESOTHELIOMA MALIGNANT
     Dosage: 130 MG, OTHER
     Route: 042
     Dates: start: 20070215
  3. PANVITAN [Concomitant]
     Dosage: 0.5 MG, DAILY (1/D)
     Route: 048
     Dates: start: 20070201, end: 20070525
  4. METHYCOBAL [Concomitant]
     Dosage: 1 MG, DAILY (1/D)
     Route: 030
     Dates: start: 20070201, end: 20070405
  5. METHYCOBAL [Concomitant]
     Dosage: 1 MG, DAILY (1/D)
     Route: 030
     Dates: start: 20070405, end: 20070405
  6. FAMOTIDINE [Concomitant]
     Indication: GASTRITIS
     Dosage: 20 MG, DAILY (1/D)
     Route: 048
     Dates: start: 20061110
  7. OXYCONTIN [Concomitant]
     Indication: CANCER PAIN
     Dosage: 5 MG, DAILY (1/D)
     Route: 048
     Dates: start: 20070202, end: 20070317
  8. KYTRIL [Concomitant]
     Indication: PROPHYLAXIS
     Dosage: 2 MG, DAILY (1/D)
     Route: 048
     Dates: start: 20070216, end: 20070424
  9. KYTRIL [Concomitant]
     Dosage: 2 MG, DAILY (1/D)
     Route: 048
     Dates: start: 20070330, end: 20070424
  10. LASIX [Concomitant]
     Indication: PROPHYLAXIS
     Dosage: 10 MG, DAILY (1/D)
     Route: 042
     Dates: start: 20070216, end: 20070426
  11. LASIX [Concomitant]
     Dosage: 10 MG, DAILY (1/D)
     Route: 042
     Dates: start: 20070308, end: 20070426
  12. LASIX [Concomitant]
     Dosage: 10 MG, DAILY (1/D)
     Route: 042
     Dates: start: 20070329, end: 20070426
  13. LASIX [Concomitant]
     Dosage: 10 MG, DAILY (1/D)
     Route: 042
     Dates: start: 20070422, end: 20070426

REACTIONS (4)
  - ANAEMIA [None]
  - HAEMOGLOBIN DECREASED [None]
  - LYMPHOCYTE COUNT DECREASED [None]
  - WHITE BLOOD CELL COUNT DECREASED [None]
